FAERS Safety Report 9474210 (Version 2)
Quarter: 2013Q3

REPORT INFORMATION
  Report Type: Report from Study
  Country: CA (occurrence: CA)
  Receive Date: 20130823
  Receipt Date: 20130918
  Transmission Date: 20140515
  Serious: Yes (Hospitalization)
  Sender: FDA-Public Use
  Company Number: CA-JNJFOC-20130808897

PATIENT
  Age: 62 Year
  Sex: Female
  Weight: 65.5 kg

DRUGS (3)
  1. REMICADE [Suspect]
     Indication: RHEUMATOID ARTHRITIS
     Route: 042
     Dates: start: 20130304, end: 20130610
  2. METHOTREXATE [Concomitant]
     Route: 058
  3. CELEBREX [Concomitant]
     Route: 048

REACTIONS (4)
  - Rhabdomyolysis [Recovered/Resolved]
  - Pneumonia aspiration [Recovered/Resolved]
  - Legionella infection [Recovered/Resolved]
  - Cerebrovascular accident [Recovering/Resolving]
